FAERS Safety Report 24006375 (Version 1)
Quarter: 2024Q2

REPORT INFORMATION
  Report Type: Spontaneous
  Country: US (occurrence: US)
  Receive Date: 20240624
  Receipt Date: 20240624
  Transmission Date: 20240715
  Serious: Yes (Other)
  Sender: FDA-Public Use
  Company Number: US-AMGEN-USASP2024122736

PATIENT
  Age: 45 Year
  Sex: Female

DRUGS (1)
  1. INFLIXIMAB [Suspect]
     Active Substance: INFLIXIMAB
     Indication: Sarcoidosis
     Dosage: UNK
     Route: 065

REACTIONS (4)
  - Hepatic failure [Unknown]
  - Drug effective for unapproved indication [Unknown]
  - Lymphadenopathy [Unknown]
  - Off label use [Unknown]
